FAERS Safety Report 5481390-8 (Version None)
Quarter: 2007Q4

REPORT INFORMATION
  Report Type: 
  Country: None (occurrence: None)
  Receive Date: 20071010
  Receipt Date: 20071002
  Transmission Date: 20080405
  Serious: Yes (Other)
  Sender: FDA-Public Use
  Company Number: JP-AVENTIS-200712614JP

PATIENT
  Age: 17 Year
  Sex: Female

DRUGS (3)
  1. ALLEGRA                            /01314201/ [Suspect]
     Route: 048
  2. CELESTAMINE                        /00008501/ [Concomitant]
  3. DEPAKENE                           /00228501/ [Concomitant]

REACTIONS (1)
  - LOSS OF CONSCIOUSNESS [None]
